FAERS Safety Report 4718191-1 (Version None)
Quarter: 2005Q3

REPORT INFORMATION
  Report Type: 
  Country: None (occurrence: None)
  Receive Date: 20050720
  Receipt Date: 20050709
  Transmission Date: 20060218
  Serious: Yes (Other)
  Sender: FDA-Public Use
  Company Number: US-ROCHE-410483

PATIENT
  Age: 48 Year
  Sex: Female
  Weight: 58.1 kg

DRUGS (5)
  1. PEGASYS [Suspect]
     Route: 058
     Dates: start: 20041015
  2. COPEGUS [Suspect]
     Route: 048
     Dates: start: 20041015
  3. PAXIL [Concomitant]
     Indication: DEPRESSION
     Route: 048
  4. XANAX [Concomitant]
     Indication: ANXIETY
     Route: 048
  5. HYOSCYAMINE [Concomitant]
     Indication: IRRITABLE BOWEL SYNDROME

REACTIONS (4)
  - DEHYDRATION [None]
  - FAECES DISCOLOURED [None]
  - LIP DRY [None]
  - THYROIDITIS [None]
